FAERS Safety Report 21696290 (Version 1)
Quarter: 2022Q4

REPORT INFORMATION
  Report Type: Spontaneous
  Country: US (occurrence: US)
  Receive Date: 20221207
  Receipt Date: 20221207
  Transmission Date: 20230112
  Serious: No
  Sender: FDA-Public Use
  Company Number: US-OTTER-US-2022AST000144

PATIENT
  Sex: Female

DRUGS (1)
  1. OTREXUP [Suspect]
     Active Substance: METHOTREXATE
     Indication: Leprosy
     Dosage: UNK, WEEKLY
     Route: 058
     Dates: start: 2021

REACTIONS (1)
  - Product use in unapproved indication [Unknown]
